FAERS Safety Report 6214142-1 (Version None)
Quarter: 2009Q2

REPORT INFORMATION
  Report Type: 
  Country: None (occurrence: None)
  Receive Date: 20090604
  Receipt Date: 20090526
  Transmission Date: 20091009
  Serious: Yes (Other)
  Sender: FDA-Public Use
  Company Number: US-ROCHE-635422

PATIENT
  Sex: Female
  Weight: 0.6 kg

DRUGS (10)
  1. MYCOPHENOLATE MOFETIL [Suspect]
     Route: 064
     Dates: end: 20071201
  2. PREDNISONE [Suspect]
  3. PROGRAF [Suspect]
  4. AZATHIOPRINE [Suspect]
     Dates: start: 20071201
  5. INSULIN [Suspect]
  6. ASPIRIN [Concomitant]
  7. LABETALOL HCL [Concomitant]
  8. SEPTRA [Concomitant]
  9. URSODIOL [Concomitant]
  10. LOVENOX [Concomitant]

REACTIONS (1)
  - PREMATURE LABOUR [None]
